FAERS Safety Report 6844000-0 (Version None)
Quarter: 2010Q3

REPORT INFORMATION
  Report Type: 
  Country: None (occurrence: None)
  Receive Date: 20100714
  Receipt Date: 20100714
  Transmission Date: 20110219
  Serious: No
  Sender: FDA-Public Use
  Company Number: None

PATIENT
  Age: 65 Year
  Sex: Male
  Weight: 81.1939 kg

DRUGS (1)
  1. ATACAND [Suspect]
     Dosage: 4MG ONCE DAILY PO
     Route: 048
     Dates: start: 20080801

REACTIONS (4)
  - AMNESIA [None]
  - ANXIETY [None]
  - DYSARTHRIA [None]
  - TRANSIENT ISCHAEMIC ATTACK [None]
